FAERS Safety Report 22087304 (Version 3)
Quarter: 2023Q1

REPORT INFORMATION
  Report Type: Spontaneous
  Country: US (occurrence: US)
  Receive Date: 20230313
  Receipt Date: 20230324
  Transmission Date: 20230418
  Serious: No
  Sender: FDA-Public Use
  Company Number: US-UNITED THERAPEUTICS-UNT-2023-003834

PATIENT
  Sex: Female

DRUGS (15)
  1. REMODULIN [Suspect]
     Active Substance: TREPROSTINIL
     Indication: Pulmonary arterial hypertension
     Dosage: 0.00411 ?G/KG, CONTINUING
     Route: 058
     Dates: start: 202301
  2. REMODULIN [Suspect]
     Active Substance: TREPROSTINIL
     Dosage: 0.00459 ?G/KG, CONTINUING
     Route: 058
  3. REMODULIN [Suspect]
     Active Substance: TREPROSTINIL
     Dosage: 0.00531 ?G/KG, CONTINUING
     Route: 058
  4. REMODULIN [Suspect]
     Active Substance: TREPROSTINIL
     Dosage: 0.00604 ?G/KG, CONTINUING
     Route: 058
  5. REMODULIN [Suspect]
     Active Substance: TREPROSTINIL
     Dosage: 0.007 ?G/KG, CONTINUING
     Route: 058
  6. UPTRAVI [Concomitant]
     Active Substance: SELEXIPAG
     Indication: Pulmonary arterial hypertension
     Dosage: 1600 MCG, BID (1 IN 0.5 DAYS)
     Route: 048
     Dates: start: 20160229
  7. UPTRAVI [Concomitant]
     Active Substance: SELEXIPAG
     Dosage: 200 MCG, BID (1 IN 0.5 DAYS)
     Route: 048
     Dates: start: 20160301
  8. UPTRAVI [Concomitant]
     Active Substance: SELEXIPAG
     Dosage: 1600 MCG, BID (1 IN 0.5 DAYS)
     Route: 048
     Dates: start: 201603
  9. UPTRAVI [Concomitant]
     Active Substance: SELEXIPAG
     Dosage: 400 MCG, BID (1 IN 0.5 DAYS)
     Route: 048
     Dates: start: 201603
  10. UPTRAVI [Concomitant]
     Active Substance: SELEXIPAG
     Dosage: 1600 MCG, BID (1 IN 0.5 DAYS)
     Route: 048
     Dates: start: 201911
  11. UPTRAVI [Concomitant]
     Active Substance: SELEXIPAG
     Dosage: 600 MCG, BID (1 IN 0.5 DAYS)
     Route: 048
     Dates: start: 202108
  12. UPTRAVI [Concomitant]
     Active Substance: SELEXIPAG
     Dosage: 800 MCG, BID (1 IN 0.5 DAYS)
     Route: 048
     Dates: start: 202108
  13. UPTRAVI [Concomitant]
     Active Substance: SELEXIPAG
     Dosage: 600 MCG, BID (1 IN 0.5 DAYS)
     Route: 048
     Dates: start: 202302
  14. UPTRAVI [Concomitant]
     Active Substance: SELEXIPAG
     Dosage: 800 MCG, BID (1 IN 0.5 DAYS)
     Route: 048
     Dates: start: 202302
  15. UPTRAVI [Concomitant]
     Active Substance: SELEXIPAG
     Dosage: 1400 MCG, BID (USING 1- 800MCG + 3- 200MCG TABS BID)
     Route: 048

REACTIONS (10)
  - Headache [Not Recovered/Not Resolved]
  - Infusion site pain [Recovered/Resolved]
  - Infusion site erythema [Recovered/Resolved]
  - Diarrhoea [Not Recovered/Not Resolved]
  - Arthralgia [Not Recovered/Not Resolved]
  - Fatigue [Not Recovered/Not Resolved]
  - Abdominal distension [Not Recovered/Not Resolved]
  - Infusion site erosion [Unknown]
  - Device dislocation [Recovered/Resolved]
  - Pain in jaw [Unknown]
